FAERS Safety Report 5537118-6 (Version None)
Quarter: 2007Q4

REPORT INFORMATION
  Report Type: 
  Country: None (occurrence: None)
  Receive Date: 20071207
  Receipt Date: 20071130
  Transmission Date: 20080405
  Serious: Yes (Other)
  Sender: FDA-Public Use
  Company Number: US-AVENTIS-200718290US

PATIENT
  Sex: Female
  Weight: 86.36 kg

DRUGS (2)
  1. CLOMID [Suspect]
     Route: 048
     Dates: start: 20071001, end: 20070101
  2. CLOMID [Suspect]
     Route: 048
     Dates: start: 20071101

REACTIONS (5)
  - EYE INFLAMMATION [None]
  - HEADACHE [None]
  - OPTIC NEURITIS [None]
  - PAPILLOEDEMA [None]
  - RETINAL DISORDER [None]
